FAERS Safety Report 5410928-1 (Version None)
Quarter: 2007Q3

REPORT INFORMATION
  Report Type: 
  Country: None (occurrence: None)
  Receive Date: 20070810
  Receipt Date: 20070803
  Transmission Date: 20080115
  Serious: Yes (Other)
  Sender: FDA-Public Use
  Company Number: JP-ABBOTT-01P-087-0108143-00

PATIENT
  Sex: Male

DRUGS (18)
  1. NORVIR [Suspect]
     Indication: HIV INFECTION
     Route: 048
     Dates: start: 20000615, end: 20010307
  2. KALETRA [Suspect]
     Indication: HIV INFECTION
     Route: 048
     Dates: start: 20010510, end: 20061115
  3. KALETRA [Suspect]
     Indication: HIV INFECTION
     Route: 048
     Dates: start: 20061116
  4. DIDANOSINE [Suspect]
     Indication: HIV INFECTION
     Route: 048
     Dates: start: 19991101, end: 20010307
  5. STAVUDINE [Suspect]
     Indication: HIV INFECTION
     Route: 048
     Dates: start: 19991101, end: 20010307
  6. STAVUDINE [Suspect]
     Dates: start: 20010510
  7. NELFINAVIR [Suspect]
     Indication: HIV INFECTION
     Route: 048
     Dates: start: 19991101, end: 20000614
  8. SAQUINAVIR [Suspect]
     Indication: HIV INFECTION
     Route: 048
     Dates: start: 20000615, end: 20010307
  9. EFAVIRENZ [Suspect]
     Indication: HIV INFECTION
     Route: 048
     Dates: start: 20010308, end: 20010318
  10. BACTRIM [Suspect]
     Indication: ANTIFUNGAL PROPHYLAXIS
     Route: 048
     Dates: start: 20010308
  11. ZIDOVUDINE [Suspect]
     Indication: HIV INFECTION
     Route: 048
     Dates: start: 20010510, end: 20010516
  12. ABACAVIR [Suspect]
     Indication: HIV INFECTION
     Route: 048
     Dates: start: 20010510
  13. NEVIRAPINE [Suspect]
     Indication: HIV INFECTION
     Route: 048
     Dates: start: 20010510
  14. NEVIRAPINE [Suspect]
     Route: 048
     Dates: start: 20020524
  15. AMLODIPINE BESYLATE [Concomitant]
     Indication: HYPERTENSION
     Dates: start: 19991101
  16. ENALAPRIL MALEATE [Concomitant]
     Indication: HYPERTENSION
     Dates: start: 19991101
  17. PRAVASTATIN SODIUM [Concomitant]
     Indication: HYPERLIPIDAEMIA
     Route: 048
     Dates: start: 20060427, end: 20061115
  18. PRAVASTATIN SODIUM [Concomitant]
     Route: 048
     Dates: start: 20061116

REACTIONS (9)
  - ABDOMINAL DISTENSION [None]
  - CEREBRAL INFARCTION [None]
  - DRUG ERUPTION [None]
  - FEELING ABNORMAL [None]
  - GAMMA-GLUTAMYLTRANSFERASE INCREASED [None]
  - HEPATIC FUNCTION ABNORMAL [None]
  - HYPERURICAEMIA [None]
  - THROMBOCYTOPENIA [None]
  - WHITE BLOOD CELL COUNT DECREASED [None]
